FAERS Safety Report 12270826 (Version 2)
Quarter: 2016Q4

REPORT INFORMATION
  Report Type: Report from Study
  Country: CA (occurrence: CA)
  Receive Date: 20160415
  Receipt Date: 20161222
  Transmission Date: 20170207
  Serious: Yes (Other)
  Sender: FDA-Public Use
  Company Number: CA-ROCHE-1700124

PATIENT
  Age: 52 Year
  Sex: Female

DRUGS (4)
  1. PLAQUENIL [Concomitant]
     Active Substance: HYDROXYCHLOROQUINE SULFATE
  2. SULFASALAZINE. [Concomitant]
     Active Substance: SULFASALAZINE
  3. ACTEMRA [Suspect]
     Active Substance: TOCILIZUMAB
     Indication: RHEUMATOID ARTHRITIS
     Route: 058
     Dates: start: 2015, end: 201612
  4. PREDNISONE. [Concomitant]
     Active Substance: PREDNISONE

REACTIONS (18)
  - Headache [Unknown]
  - Urobilinogen urine increased [Unknown]
  - Haemoglobin urine present [Unknown]
  - White blood cells urine positive [Unknown]
  - Protein urine present [Unknown]
  - Limb mass [Unknown]
  - Red cell distribution width increased [Unknown]
  - Mean cell haemoglobin decreased [Unknown]
  - Aspartate aminotransferase increased [Unknown]
  - C-reactive protein increased [Unknown]
  - Urine leukocyte esterase positive [Unknown]
  - Hand deformity [Unknown]
  - Arthritis [Unknown]
  - Mean platelet volume decreased [Unknown]
  - Inflammation [Unknown]
  - Pain [Unknown]
  - Contusion [Unknown]
  - Arthropathy [Unknown]

NARRATIVE: CASE EVENT DATE: 2016
